FAERS Safety Report 9538657 (Version 1)
Quarter: 2013Q2

REPORT INFORMATION
  Report Type: Spontaneous
  Country: US (occurrence: None)
  Receive Date: 20130517
  Receipt Date: 20130517
  Transmission Date: 20140414
  Serious: No
  Sender: FDA-Public Use
  Company Number: 1000043799

PATIENT
  Age: 33 Year
  Sex: Female

DRUGS (7)
  1. VIIBRYD (VILAZODONE HYDROCHLORIDE) (10 MILLIGRAM, TABLETS) [Suspect]
     Indication: DEPRESSION
     Dosage: 10 MG (10 MG, 1 IN 1 D), ORAL
     Route: 048
     Dates: start: 201212, end: 201212
  2. VIIBRYD (VILAZODONE HYDROCHLORIDE) (10 MILLIGRAM, TABLETS) [Suspect]
     Indication: OBSESSIVE-COMPULSIVE DISORDER
     Dosage: 10 MG (10 MG, 1 IN 1 D), ORAL
     Route: 048
     Dates: start: 201212, end: 201212
  3. BEYAZ (DROSPIRENONE, ETHINYL ESTRADIOL, LEVOMEFOLATE CALCIUM) [Suspect]
     Indication: PREMENSTRUAL DYSPHORIC DISORDER
     Route: 048
     Dates: start: 201212
  4. PORTIA (ETHINYL ESTRADIOL, LEVONORGESTREL) [Suspect]
     Indication: PREMENSTRUAL DYSPHORIC DISORDER
  5. SEASONIQUE (ETHINYL ESTRADIOL, LEVONORGESTREL) [Suspect]
     Dates: start: 201303
  6. WELLBUTRIN (BUPROPION HYDROCHLORIDE) (BUPROPION HYDROCHLORIDE) [Concomitant]
  7. MVI (VITAMINS NOS (VITAMINS NOS) [Concomitant]

REACTIONS (6)
  - Drug interaction [None]
  - Ovulation disorder [None]
  - Menorrhagia [None]
  - Night sweats [None]
  - Nightmare [None]
  - Anger [None]
